FAERS Safety Report 13760981 (Version 1)
Quarter: 2017Q3

REPORT INFORMATION
  Report Type: Report from Study
  Country: US (occurrence: US)
  Receive Date: 20170717
  Receipt Date: 20170717
  Transmission Date: 20171127
  Serious: Yes (Death, Hospitalization, Other)
  Sender: FDA-Public Use
  Company Number: US-NOVOPROD-547767

PATIENT
  Age: 74 Year
  Sex: Male
  Weight: 84.35 kg

DRUGS (2)
  1. LEVEMIR [Suspect]
     Active Substance: INSULIN DETEMIR
     Indication: TYPE 2 DIABETES MELLITUS
     Dosage: 20 U, QD IN AM
     Route: 058
     Dates: end: 20170520
  2. LEVEMIR [Suspect]
     Active Substance: INSULIN DETEMIR
     Dosage: 100 U, QD BEDTIME
     Route: 058
     Dates: end: 20170520

REACTIONS (6)
  - Multiple organ dysfunction syndrome [Fatal]
  - Cardio-respiratory arrest [Not Recovered/Not Resolved]
  - Road traffic accident [Not Recovered/Not Resolved]
  - Diabetic ketoacidosis [Not Recovered/Not Resolved]
  - Contusion [Not Recovered/Not Resolved]
  - Coma [Not Recovered/Not Resolved]

NARRATIVE: CASE EVENT DATE: 201705
